FAERS Safety Report 7398330-7 (Version None)
Quarter: 2011Q2

REPORT INFORMATION
  Report Type: 
  Country: None (occurrence: None)
  Receive Date: 20110406
  Receipt Date: 20110325
  Transmission Date: 20111010
  Serious: Yes (Life-Threatening, Hospitalization, Other)
  Sender: FDA-Public Use
  Company Number: US-ELI_LILLY_AND_COMPANY-US200908006079

PATIENT
  Sex: Female

DRUGS (25)
  1. ALTACE [Concomitant]
  2. CELEBREX [Concomitant]
  3. UROCIT-K [Concomitant]
  4. LORTAB [Concomitant]
     Indication: PAIN
     Dosage: UNK, AS NEEDED
  5. FORTEO [Suspect]
     Indication: OSTEOPOROSIS
     Dosage: 20 MG, DAILY (1/D)
  6. ACIPHEX [Concomitant]
  7. VIT D [Concomitant]
  8. KLONOPIN [Concomitant]
     Dosage: UNK, AS NEEDED
  9. CITRICAL [Concomitant]
  10. ADVAIR DISKUS 100/50 [Concomitant]
  11. BYSTOLIC [Concomitant]
  12. THYROXINE [Concomitant]
  13. PROVIGIL [Concomitant]
  14. EXFORGE [Concomitant]
  15. DEPAKOTE [Concomitant]
  16. NAMENDA [Concomitant]
  17. NEURONTIN [Concomitant]
  18. OXYTROL [Concomitant]
  19. ALBUTEROL [Concomitant]
     Indication: DYSPNOEA
     Dosage: UNK, AS NEEDED
  20. IRON [Concomitant]
  21. AMBIEN [Concomitant]
     Dosage: UNK, AT NIGHT AS NEEDED
  22. ASPIRIN [Concomitant]
  23. EFFEXOR [Concomitant]
  24. EXELON [Concomitant]
  25. THEREVAC [Concomitant]

REACTIONS (18)
  - MALAISE [None]
  - LOCALISED INFECTION [None]
  - HERPES ZOSTER [None]
  - RASH [None]
  - STREPTOCOCCAL INFECTION [None]
  - EXOSTOSIS [None]
  - CELLULITIS [None]
  - MASS [None]
  - STAPHYLOCOCCAL INFECTION [None]
  - OEDEMA PERIPHERAL [None]
  - MUSCULAR WEAKNESS [None]
  - MECHANICAL VENTILATION [None]
  - RENAL IMPAIRMENT [None]
  - LOSS OF CONSCIOUSNESS [None]
  - PAIN IN EXTREMITY [None]
  - BLOOD PRESSURE DECREASED [None]
  - ANXIETY [None]
  - LUNG DISORDER [None]
